FAERS Safety Report 8518751-6 (Version None)
Quarter: 2012Q3

REPORT INFORMATION
  Report Type: 
  Country: None (occurrence: None)
  Receive Date: 20120718
  Receipt Date: 20120712
  Transmission Date: 20120928
  Serious: Yes (Other)
  Sender: FDA-Public Use
  Company Number: PHHY2012CA060594

PATIENT
  Sex: Male

DRUGS (1)
  1. CLOZARIL [Suspect]
     Dosage: UNK UKN, UNK
     Dates: start: 20120626

REACTIONS (6)
  - ISCHAEMIA [None]
  - BACK PAIN [None]
  - ELECTROCARDIOGRAM ABNORMAL [None]
  - ARTHRALGIA [None]
  - PYREXIA [None]
  - URINARY SEDIMENT ABNORMAL [None]
